FAERS Safety Report 12104755 (Version 1)
Quarter: 2016Q1

REPORT INFORMATION
  Report Type: Spontaneous
  Country: US (occurrence: US)
  Receive Date: 20160223
  Receipt Date: 20160223
  Transmission Date: 20160526
  Serious: No
  Sender: FDA-Public Use
  Company Number: US-SHIRE-US201601708

PATIENT
  Age: 4 Decade
  Sex: Male
  Weight: 115.65 kg

DRUGS (6)
  1. PENTASA [Suspect]
     Active Substance: MESALAMINE
     Dosage: UNK( 4-8 G), 1X/DAY:QD
     Route: 048
  2. FIBER [Concomitant]
     Active Substance: PSYLLIUM HUSK
     Indication: SUPPLEMENTATION THERAPY
     Dosage: UNK(1 TBS), 1X/DAY:QD (IN WATER)
     Route: 048
  3. PENTASA [Suspect]
     Active Substance: MESALAMINE
     Indication: CROHN^S DISEASE
     Dosage: 2 G, 1X/DAY:QD
     Route: 048
     Dates: end: 2016
  4. ALIGN [Concomitant]
     Active Substance: BIFIDOBACTERIUM LONGUM SUBSP. INFANTIS
     Indication: PRODUCT USED FOR UNKNOWN INDICATION
     Dosage: 1 DF, 1X/DAY:QD
     Route: 048
  5. LIALDA [Suspect]
     Active Substance: MESALAMINE
     Indication: CROHN^S DISEASE
     Dosage: 2.4 G, 1X/DAY:QD
     Route: 048
     Dates: start: 2016
  6. LANSOPRAZOLE. [Concomitant]
     Active Substance: LANSOPRAZOLE
     Indication: PRODUCT USED FOR UNKNOWN INDICATION
     Dosage: UNK (30-60 MG), 1X/DAY:QD
     Route: 048

REACTIONS (3)
  - Product use issue [Not Recovered/Not Resolved]
  - Prescribed overdose [Recovered/Resolved]
  - Granuloma [Unknown]

NARRATIVE: CASE EVENT DATE: 201512
